FAERS Safety Report 9359370 (Version 2)
Quarter: 2013Q3

REPORT INFORMATION
  Report Type: Spontaneous
  Country: JP (occurrence: JP)
  Receive Date: 20130620
  Receipt Date: 20130812
  Transmission Date: 20140515
  Serious: Yes (Life-Threatening, Hospitalization)
  Sender: FDA-Public Use
  Company Number: JP-MERCK-1306JPN008156

PATIENT
  Age: 61 Year
  Sex: Female

DRUGS (14)
  1. GLACTIV [Suspect]
     Indication: TYPE 2 DIABETES MELLITUS
     Dosage: 100 MG, QD
     Route: 048
     Dates: start: 20100913, end: 20130701
  2. PREDONINE [Suspect]
     Indication: CHRONIC INFLAMMATORY DEMYELINATING POLYRADICULONEUROPATHY
     Dosage: 10-1000MG/DAY
     Route: 048
     Dates: start: 19960312
  3. EXFORGE [Concomitant]
     Dosage: UNK
     Dates: start: 20110803
  4. LIVALO [Concomitant]
     Dosage: UNK
     Dates: start: 20110209
  5. METGLUCO [Concomitant]
     Dosage: UNK
     Dates: start: 20111221, end: 20120403
  6. OMEPRAL [Concomitant]
     Dosage: UNK
     Dates: start: 20101012
  7. CALFINA [Concomitant]
     Dosage: UNK
     Dates: start: 20090306
  8. MECOBALAMIN [Concomitant]
     Dosage: UNK
     Dates: start: 20080823
  9. BENET [Concomitant]
     Dosage: UNK
     Dates: start: 20120323
  10. METGLUCO [Concomitant]
     Dosage: UNK
     Dates: start: 20120404
  11. DIOVAN [Concomitant]
     Dosage: UNK
     Dates: start: 20110105, end: 20110802
  12. REBAMIPIDE [Concomitant]
     Dosage: UNK
     Dates: start: 20130326, end: 20130423
  13. GASMOTIN [Concomitant]
     Dosage: UNK
     Dates: start: 20130423, end: 20130508
  14. THIATON [Concomitant]
     Dosage: UNK
     Dates: start: 20130508, end: 20130525

REACTIONS (1)
  - Pancreatic carcinoma [Not Recovered/Not Resolved]
